FAERS Safety Report 19886557 (Version 2)
Quarter: 2023Q4

REPORT INFORMATION
  Report Type: Spontaneous
  Country: PL (occurrence: PL)
  Receive Date: 20210927
  Receipt Date: 20231006
  Transmission Date: 20240109
  Serious: Yes (Life-Threatening)
  Sender: FDA-Public Use
  Company Number: None

PATIENT
  Age: 49 Year
  Sex: Female
  Weight: 75 kg

DRUGS (2)
  1. ULTRAVIST [Suspect]
     Active Substance: IOPROMIDE
     Indication: Diagnostic procedure
     Dosage: 70 UNIT UNKNOWN
     Route: 042
     Dates: start: 20210216, end: 20210216
  2. ULTRAVIST [Suspect]
     Active Substance: IOPROMIDE
     Indication: Diagnostic procedure
     Dosage: 70 UNIT UNKNOWN
     Route: 042
     Dates: start: 20210216, end: 20210216

REACTIONS (2)
  - Loss of consciousness [Unknown]
  - Skin lesion [Unknown]
